FAERS Safety Report 10185909 (Version 1)
Quarter: 2014Q2

REPORT INFORMATION
  Report Type: Spontaneous
  Country: US (occurrence: None)
  Receive Date: 20140520
  Receipt Date: 20140520
  Transmission Date: 20141212
  Serious: Yes (Hospitalization)
  Sender: FDA-Public Use
  Company Number: None

PATIENT
  Age: 69 Year
  Sex: Male
  Weight: 76 kg

DRUGS (1)
  1. SULFAMETHOXAZOLE/TREIMETHOPRIM [Suspect]
     Indication: URINARY TRACT INFECTION
     Dosage: 1 TAB, BID, PO
     Route: 048
     Dates: start: 20131112, end: 20131129

REACTIONS (3)
  - Thrombocytopenia [None]
  - Agranulocytosis [None]
  - Pyrexia [None]
